FAERS Safety Report 19047952 (Version 2)
Quarter: 2022Q2

REPORT INFORMATION
  Report Type: Spontaneous
  Country: JP (occurrence: None)
  Receive Date: 20210323
  Receipt Date: 20220609
  Transmission Date: 20220720
  Serious: Yes (Other)
  Sender: FDA-Public Use
  Company Number: 2021A164103

PATIENT
  Age: 71 Year
  Sex: Female

DRUGS (5)
  1. IMFINZI [Suspect]
     Active Substance: DURVALUMAB
     Indication: Non-small cell lung cancer
     Route: 041
  2. IPILIMUMAB [Concomitant]
     Active Substance: IPILIMUMAB
  3. NIVOLUMAB [Concomitant]
     Active Substance: NIVOLUMAB
  4. CARBOPLATIN [Concomitant]
     Active Substance: CARBOPLATIN
  5. PEMETREXED [Concomitant]
     Active Substance: PEMETREXED

REACTIONS (3)
  - Metastases to bone [Unknown]
  - Metastases to adrenals [Unknown]
  - Metastasis [Unknown]
